FAERS Safety Report 9233229 (Version 2)
Quarter: 2013Q2

REPORT INFORMATION
  Report Type: Spontaneous
  Country: US (occurrence: None)
  Receive Date: 20121031
  Receipt Date: 20130107
  Transmission Date: 20140414
  Serious: Yes (Other)
  Sender: FDA-Public Use
  Company Number: PHEH2012US014201

PATIENT
  Age: 50 Year
  Sex: Male

DRUGS (6)
  1. GILENYA (FTY) CAPSULE, 0.5MG [Suspect]
     Indication: MULTIPLE SCLEROSIS
     Route: 048
     Dates: start: 20120907
  2. TRAZODONE (TRAZODONE) [Concomitant]
  3. LEXAPRO (ESCITALOPRAM OXALATE) [Concomitant]
  4. HYDROCHLOROTHIAZIDE (HYDROCHLOROTHIAZIDE) [Concomitant]
  5. COZAAR (LOSARTAN POTASSIUM) [Concomitant]
  6. BACLOFEN (BACLOFEN) [Concomitant]

REACTIONS (1)
  - Fatigue [None]
